FAERS Safety Report 5037685-5 (Version None)
Quarter: 2006Q2

REPORT INFORMATION
  Report Type: 
  Country: None (occurrence: None)
  Receive Date: 20060627
  Receipt Date: 20060627
  Transmission Date: 20061013
  Serious: Yes (Other)
  Sender: FDA-Public Use
  Company Number: None

PATIENT
  Age: 20 Year
  Sex: Female
  Weight: 43 kg

DRUGS (13)
  1. LYRICA [Suspect]
     Indication: ERYTHROMELALGIA
     Dosage: 150 MG TWICE DAILY PO
     Route: 048
     Dates: start: 20051201, end: 20060623
  2. CITALOPRAM [Concomitant]
  3. DIABETIC TEST STRIP- ONE TOUCH TEST [Concomitant]
  4. INVITRO STRIP [Concomitant]
  5. INSULIN ASPART [Concomitant]
  6. NOVOLOG [Concomitant]
  7. LANTUS [Concomitant]
  8. LIDODERM PATCH [Concomitant]
  9. LORAZEPAM [Concomitant]
  10. METHADONE HCL [Concomitant]
  11. METOCLOPRAMIDE HCL [Concomitant]
  12. ZOCOR [Concomitant]
  13. TRIAMTERENE AND HYDROCHLOROTHIAZIDE [Concomitant]

REACTIONS (2)
  - VITREOUS FLOATERS [None]
  - VITREOUS HAEMORRHAGE [None]
